FAERS Safety Report 4451079-2 (Version None)
Quarter: 2004Q3

REPORT INFORMATION
  Report Type: 
  Country: None (occurrence: None)
  Receive Date: 20040912
  Receipt Date: 20040428
  Transmission Date: 20050211
  Serious: No
  Sender: FDA-Public Use
  Company Number: USA040465922

PATIENT
  Age: 51 Year
  Sex: Male

DRUGS (1)
  1. CIALIS [Suspect]
     Dosage: 20 MG
     Dates: start: 20040423, end: 20040424

REACTIONS (11)
  - ANGER [None]
  - BACK PAIN [None]
  - BUTTOCK PAIN [None]
  - CLAUSTROPHOBIA [None]
  - DRUG INEFFECTIVE [None]
  - FLATULENCE [None]
  - HEART RATE INCREASED [None]
  - MUSCLE SPASMS [None]
  - NASAL CONGESTION [None]
  - PAIN [None]
  - PAIN IN EXTREMITY [None]
